FAERS Safety Report 6023736-8 (Version None)
Quarter: 2008Q4

REPORT INFORMATION
  Report Type: 
  Country: None (occurrence: None)
  Receive Date: 20081230
  Receipt Date: 20081219
  Transmission Date: 20090506
  Serious: Yes (Death, Hospitalization)
  Sender: FDA-Public Use
  Company Number: US-BAXTER-2008BH014117

PATIENT
  Age: 76 Year
  Sex: Male

DRUGS (1)
  1. DIANEAL [Suspect]
     Indication: RENAL FAILURE CHRONIC
     Route: 033
     Dates: start: 20060722, end: 20080727

REACTIONS (3)
  - FALL [None]
  - PELVIC FRACTURE [None]
  - PNEUMONIA [None]
